FAERS Safety Report 25005441 (Version 1)
Quarter: 2025Q1

REPORT INFORMATION
  Report Type: Spontaneous
  Country: JP (occurrence: JP)
  Receive Date: 20250224
  Receipt Date: 20250224
  Transmission Date: 20250408
  Serious: Yes (Other)
  Sender: EISAI
  Company Number: JP-Eisai-EC-2025-184695

PATIENT
  Age: 65 Year
  Sex: Male

DRUGS (5)
  1. LENVIMA [Suspect]
     Active Substance: LENVATINIB
     Indication: Renal cell carcinoma
     Route: 048
     Dates: start: 20230417, end: 20230821
  2. LENVIMA [Suspect]
     Active Substance: LENVATINIB
     Dates: start: 20231002, end: 202406
  3. LENVIMA [Suspect]
     Active Substance: LENVATINIB
     Dates: start: 202409
  4. KEYTRUDA [Suspect]
     Active Substance: PEMBROLIZUMAB
     Indication: Renal cell carcinoma
     Dates: start: 20230417, end: 20230821
  5. KEYTRUDA [Suspect]
     Active Substance: PEMBROLIZUMAB
     Dates: start: 20231002, end: 202406

REACTIONS (2)
  - Immune-mediated hepatitis [Unknown]
  - Immune-mediated enterocolitis [Unknown]

NARRATIVE: CASE EVENT DATE: 20240601
